FAERS Safety Report 23499314 (Version 1)
Quarter: 2024Q1

REPORT INFORMATION
  Report Type: Other
  Country: CN (occurrence: None)
  Receive Date: 20240208
  Receipt Date: 20240208
  Transmission Date: 20240410
  Serious: Yes (Death)
  Sender: FDA-Public Use
  Company Number: CN-ROCHE-3504108

PATIENT
  Age: 52 Year
  Sex: Female

DRUGS (1)
  1. TECENTRIQ [Suspect]
     Active Substance: ATEZOLIZUMAB
     Indication: Non-small cell lung cancer metastatic
     Dosage: INJECTION, 1200 MG /20 ML PER VIAL, INTRAVENOUS INFUSION
     Route: 042
     Dates: start: 20230803

REACTIONS (1)
  - Disease progression [Fatal]
